FAERS Safety Report 8850517 (Version 1)
Quarter: 2012Q4

REPORT INFORMATION
  Report Type: 
  Country: US (occurrence: US)
  Receive Date: 20121019
  Receipt Date: 20121019
  Transmission Date: 20130627
  Serious: No
  Sender: FDA-Public Use
  Company Number: US-ASTRAZENECA-2012SE76256

PATIENT
  Age: 69 Year
  Sex: Male
  Weight: 90.7 kg

DRUGS (8)
  1. NEXIUM [Suspect]
     Indication: DYSPEPSIA
     Route: 048
     Dates: start: 2007
  2. NEXIUM [Suspect]
     Indication: DYSPEPSIA
     Route: 048
     Dates: start: 2007
  3. NEXIUM [Suspect]
     Indication: DYSPEPSIA
     Route: 048
     Dates: start: 2007
  4. IRBESARTAN /HCTZ [Concomitant]
     Indication: BLOOD PRESSURE ABNORMAL
  5. SERTRALINE [Concomitant]
     Indication: NERVOUS SYSTEM DISORDER
  6. PHENAZOPYRIDINE [Concomitant]
     Indication: RENAL DISORDER
  7. CLONAZEPAM [Concomitant]
     Indication: RESTLESS LEGS SYNDROME
  8. DOXAZOSIN [Concomitant]
     Indication: URINARY RETENTION

REACTIONS (6)
  - Urinary retention [Unknown]
  - Hypertension [Unknown]
  - Renal disorder [Unknown]
  - Nervous system disorder [Unknown]
  - Restless legs syndrome [Unknown]
  - Drug ineffective [Unknown]
